FAERS Safety Report 8697900 (Version 2)
Quarter: 2013Q4

REPORT INFORMATION
  Report Type: Spontaneous
  Country: US (occurrence: US)
  Receive Date: 20120801
  Receipt Date: 20131105
  Transmission Date: 20140711
  Serious: Yes (Other)
  Sender: FDA-Public Use
  Company Number: US-009507513-1207USA011150

PATIENT
  Sex: 0

DRUGS (1)
  1. SIMVASTATIN TABLETS, USP [Suspect]
     Dosage: 40 MG, QW
     Route: 048

REACTIONS (6)
  - Impaired work ability [Unknown]
  - Oedema peripheral [Unknown]
  - Joint swelling [Unknown]
  - Myalgia [Unknown]
  - Swollen tongue [Unknown]
  - Arthralgia [Unknown]
